FAERS Safety Report 17848971 (Version 4)
Quarter: 2020Q3

REPORT INFORMATION
  Report Type: Spontaneous
  Country: US (occurrence: US)
  Receive Date: 20200602
  Receipt Date: 20200701
  Transmission Date: 20201103
  Serious: No
  Sender: FDA-Public Use
  Company Number: NVSC2020US151816

PATIENT

DRUGS (1)
  1. PATADAY [Suspect]
     Active Substance: OLOPATADINE HYDROCHLORIDE
     Indication: VISUAL IMPAIRMENT
     Dosage: ONCE DAILY
     Route: 065

REACTIONS (2)
  - Vision blurred [Unknown]
  - Drug ineffective for unapproved indication [Unknown]
